FAERS Safety Report 21081371 (Version 1)
Quarter: 2022Q3

REPORT INFORMATION
  Report Type: Spontaneous
  Country: US (occurrence: None)
  Receive Date: 20220713
  Receipt Date: 20220713
  Transmission Date: 20221027
  Serious: Yes (Disabling)
  Sender: FDA-Public Use
  Company Number: None

PATIENT
  Age: 22 Year
  Sex: Female
  Weight: 65.25 kg

DRUGS (6)
  1. UBRELVY [Suspect]
     Active Substance: UBROGEPANT
     Indication: Migraine
     Dates: start: 20220614, end: 20220624
  2. LINZESS [Concomitant]
     Active Substance: LINACLOTIDE
  3. omeprazole (20mg) [Concomitant]
  4. VITAMIN D3 [Concomitant]
     Active Substance: CHOLECALCIFEROL
  5. MAGNESIUM CITRATE [Concomitant]
     Active Substance: MAGNESIUM CITRATE
  6. Magnesium Glycerinate [Concomitant]

REACTIONS (14)
  - Middle insomnia [None]
  - Burning sensation [None]
  - Fatigue [None]
  - Dysstasia [None]
  - Limb discomfort [None]
  - Nausea [None]
  - Vomiting [None]
  - Nervousness [None]
  - Cold sweat [None]
  - Neuralgia [None]
  - Paraesthesia [None]
  - Hypoaesthesia [None]
  - Abdominal pain [None]
  - Hypophagia [None]

NARRATIVE: CASE EVENT DATE: 20220624
